FAERS Safety Report 5476919-X (Version None)
Quarter: 2007Q3

REPORT INFORMATION
  Report Type: 
  Country: None (occurrence: None)
  Receive Date: 20070905
  Receipt Date: 20070110
  Transmission Date: 20080115
  Serious: Yes (Other)
  Sender: FDA-Public Use
  Company Number: 2007003539

PATIENT
  Age: 73 Year
  Sex: Male

DRUGS (1)
  1. NORPACE CR [Suspect]
     Dosage: 1050 MG (150 MG, 7 IN 1 D)
     Dates: start: 20060210

REACTIONS (2)
  - ARRHYTHMIA [None]
  - DRUG INEFFECTIVE [None]
